FAERS Safety Report 9632288 (Version 8)
Quarter: 2014Q3

REPORT INFORMATION
  Report Type: Spontaneous
  Country: US (occurrence: US)
  Receive Date: 20131018
  Receipt Date: 20140728
  Transmission Date: 20150326
  Serious: Yes (Hospitalization, Disabling, Other)
  Sender: FDA-Public Use
  Company Number: US-009507513-1008USA04177

PATIENT
  Sex: Female
  Weight: 62.2 kg

DRUGS (3)
  1. ESTROGEN NOS [Concomitant]
     Active Substance: ESTROGENS
     Indication: MENOPAUSE
     Dosage: UNK
     Dates: start: 1998
  2. FOSAMAX [Suspect]
     Active Substance: ALENDRONATE SODIUM
     Indication: OSTEOPENIA
     Dosage: 70 MG, QW
     Route: 048
     Dates: start: 20011024, end: 2006
  3. FOSAMAX [Suspect]
     Active Substance: ALENDRONATE SODIUM
     Indication: OSTEOPOROSIS PROPHYLAXIS

REACTIONS (62)
  - Femur fracture [Unknown]
  - Blood cholesterol increased [Unknown]
  - Rotator cuff syndrome [Unknown]
  - Irritable bowel syndrome [Unknown]
  - Dry skin [Unknown]
  - Adverse drug reaction [Unknown]
  - Osteitis [Unknown]
  - Dyspepsia [Unknown]
  - Musculoskeletal chest pain [Unknown]
  - Depression [Unknown]
  - Neuralgia [Unknown]
  - Spinal osteoarthritis [Unknown]
  - Skin neoplasm excision [Unknown]
  - Osteoarthritis [Unknown]
  - Basal cell carcinoma [Unknown]
  - Medical device removal [Unknown]
  - Rotator cuff repair [Unknown]
  - Rotator cuff repair [Unknown]
  - Bursitis [Unknown]
  - Anxiety [Unknown]
  - Trigeminal neuralgia [Unknown]
  - Increased tendency to bruise [Unknown]
  - Blood calcium increased [Unknown]
  - Mood altered [Unknown]
  - Muscle strain [Not Recovered/Not Resolved]
  - Osteoporosis [Unknown]
  - Unevaluable event [Unknown]
  - Oral herpes [Unknown]
  - Neck pain [Unknown]
  - Fracture [Unknown]
  - Fibromyalgia [Unknown]
  - Tendon operation [Unknown]
  - Radius fracture [Unknown]
  - Migraine [Unknown]
  - Arthralgia [Unknown]
  - Intramedullary rod insertion [Unknown]
  - Shoulder operation [Unknown]
  - Medical device removal [Unknown]
  - Sciatica [Unknown]
  - Intervertebral disc degeneration [Unknown]
  - Pain [Unknown]
  - Granuloma annulare [Unknown]
  - Chronic pigmented purpura [Unknown]
  - Dyslipidaemia [Unknown]
  - Osteoma [Unknown]
  - Back pain [Unknown]
  - Gastrooesophageal reflux disease [Unknown]
  - Intramedullary rod insertion [Unknown]
  - Femur fracture [Unknown]
  - Cough [Unknown]
  - Hypertension [Unknown]
  - Osteoarthritis [Unknown]
  - Forearm fracture [Unknown]
  - Exostosis [Unknown]
  - Senile osteoporosis [Unknown]
  - Osteomyelitis [Unknown]
  - Basal cell carcinoma [Unknown]
  - Vitamin D deficiency [Unknown]
  - Wrist fracture [Unknown]
  - Intervertebral disc protrusion [Unknown]
  - Nocturia [Unknown]
  - Fall [Unknown]

NARRATIVE: CASE EVENT DATE: 2001
